FAERS Safety Report 8313576-9 (Version None)
Quarter: 2012Q2

REPORT INFORMATION
  Report Type: 
  Country: None (occurrence: None)
  Receive Date: 20120425
  Receipt Date: 20120425
  Transmission Date: 20120825
  Serious: Yes (Life-Threatening, Other)
  Sender: FDA-Public Use
  Company Number: None

PATIENT
  Age: 84 Year
  Sex: Female
  Weight: 81.6475 kg

DRUGS (3)
  1. WARFARIN SODIUM [Suspect]
     Indication: COAGULOPATHY
     Dates: start: 20120201
  2. LEVOTHYROXINE SODIUM [Suspect]
     Dosage: 2 TABLETS/3 DAYS : 1 1/2 TABLETS/4 DAYS
  3. LEVOTHYROXINE SODIUM [Suspect]
     Dosage: 2 TABLETS/3 DAYS : 1 1/2 TABLETS/4 DAYS

REACTIONS (2)
  - PAIN IN EXTREMITY [None]
  - SKIN DISCOLOURATION [None]
